FAERS Safety Report 10639779 (Version 1)
Quarter: 2014Q4

REPORT INFORMATION
  Report Type: Spontaneous
  Country: US (occurrence: None)
  Receive Date: 20141205
  Receipt Date: 20141205
  Transmission Date: 20150529
  Serious: Yes (Other)
  Sender: FDA-Public Use
  Company Number: None

PATIENT
  Age: 8 Year
  Sex: Female
  Weight: 21.32 kg

DRUGS (1)
  1. CONCERTA [Suspect]
     Active Substance: METHYLPHENIDATE HYDROCHLORIDE
     Indication: ATTENTION DEFICIT/HYPERACTIVITY DISORDER
     Dosage: 1 PILL, ONCE DAILY
     Dates: start: 20141129, end: 20141202

REACTIONS (7)
  - Nightmare [None]
  - Visual impairment [None]
  - Product quality issue [None]
  - Hallucination, auditory [None]
  - Panic attack [None]
  - Hallucination, visual [None]
  - Product substitution issue [None]

NARRATIVE: CASE EVENT DATE: 20141129
